FAERS Safety Report 25468614 (Version 1)
Quarter: 2025Q2

REPORT INFORMATION
  Report Type: Spontaneous
  Country: DE (occurrence: DE)
  Receive Date: 20250623
  Receipt Date: 20250623
  Transmission Date: 20250716
  Serious: Yes (Hospitalization, Other)
  Sender: MYLAN
  Company Number: DE-SANDOZ-SDZ2025DE039780

PATIENT
  Sex: Female

DRUGS (20)
  1. CELECOXIB [Suspect]
     Active Substance: CELECOXIB
     Indication: Axial spondyloarthritis
     Dates: start: 20210106, end: 20210215
  2. CELECOXIB [Suspect]
     Active Substance: CELECOXIB
     Route: 065
     Dates: start: 20210106, end: 20210215
  3. CELECOXIB [Suspect]
     Active Substance: CELECOXIB
     Route: 065
     Dates: start: 20210106, end: 20210215
  4. CELECOXIB [Suspect]
     Active Substance: CELECOXIB
     Dates: start: 20210106, end: 20210215
  5. ERELZI [Suspect]
     Active Substance: ETANERCEPT-SZZS
     Indication: Axial spondyloarthritis
     Dates: start: 20210211, end: 20211229
  6. ERELZI [Suspect]
     Active Substance: ETANERCEPT-SZZS
     Route: 065
     Dates: start: 20210211, end: 20211229
  7. ERELZI [Suspect]
     Active Substance: ETANERCEPT-SZZS
     Route: 065
     Dates: start: 20210211, end: 20211229
  8. ERELZI [Suspect]
     Active Substance: ETANERCEPT-SZZS
     Dates: start: 20210211, end: 20211229
  9. NAPROXEN [Suspect]
     Active Substance: NAPROXEN
     Indication: Axial spondyloarthritis
     Dates: start: 20220207, end: 20221015
  10. NAPROXEN [Suspect]
     Active Substance: NAPROXEN
     Route: 065
     Dates: start: 20220207, end: 20221015
  11. NAPROXEN [Suspect]
     Active Substance: NAPROXEN
     Route: 065
     Dates: start: 20220207, end: 20221015
  12. NAPROXEN [Suspect]
     Active Substance: NAPROXEN
     Dates: start: 20220207, end: 20221015
  13. IBUPROFEN [Suspect]
     Active Substance: IBUPROFEN
     Indication: Axial spondyloarthritis
  14. IBUPROFEN [Suspect]
     Active Substance: IBUPROFEN
  15. IBUPROFEN [Suspect]
     Active Substance: IBUPROFEN
     Route: 065
  16. IBUPROFEN [Suspect]
     Active Substance: IBUPROFEN
     Route: 065
  17. IBUPROFEN [Suspect]
     Active Substance: IBUPROFEN
     Dates: start: 20230125, end: 20230626
  18. IBUPROFEN [Suspect]
     Active Substance: IBUPROFEN
     Dates: start: 20230125, end: 20230626
  19. IBUPROFEN [Suspect]
     Active Substance: IBUPROFEN
     Route: 065
     Dates: start: 20230125, end: 20230626
  20. IBUPROFEN [Suspect]
     Active Substance: IBUPROFEN
     Route: 065
     Dates: start: 20230125, end: 20230626

REACTIONS (2)
  - Thoracic vertebral fracture [Unknown]
  - Spinal pain [Unknown]

NARRATIVE: CASE EVENT DATE: 20231121
